FAERS Safety Report 8191073-1 (Version None)
Quarter: 2012Q1

REPORT INFORMATION
  Report Type: 
  Country: None (occurrence: None)
  Receive Date: 20120307
  Receipt Date: 20120301
  Transmission Date: 20120608
  Serious: Yes (Hospitalization)
  Sender: FDA-Public Use
  Company Number: US-GLAXOSMITHKLINE-A0920337A

PATIENT
  Sex: Female

DRUGS (12)
  1. PERCOCET [Concomitant]
  2. GLUCOTROL XL [Concomitant]
  3. PREVACID [Concomitant]
  4. NORVASC [Concomitant]
  5. LIPITOR [Concomitant]
  6. QUINAPRIL [Concomitant]
  7. LASIX [Concomitant]
  8. ISOSORBIDE DINITRATE [Concomitant]
  9. XANAX [Concomitant]
  10. ASPIRIN [Concomitant]
  11. AVANDIA [Suspect]
     Indication: DIABETES MELLITUS
     Dosage: 4MG PER DAY
     Route: 048
     Dates: start: 20030416, end: 20100225
  12. ATENOLOL [Concomitant]

REACTIONS (2)
  - THALAMIC INFARCTION [None]
  - CARDIAC FAILURE CONGESTIVE [None]
